FAERS Safety Report 7709056-1 (Version None)
Quarter: 2011Q3

REPORT INFORMATION
  Report Type: 
  Country: None (occurrence: None)
  Receive Date: 20110825
  Receipt Date: 20110818
  Transmission Date: 20111222
  Serious: Yes (Other)
  Sender: FDA-Public Use
  Company Number: FR-ROCHE-765897

PATIENT
  Sex: Female

DRUGS (6)
  1. CLASTOBAN [Suspect]
     Route: 048
     Dates: start: 20100630, end: 20101001
  2. AVASTIN [Suspect]
     Route: 042
     Dates: start: 20090917, end: 20100201
  3. AVASTIN [Suspect]
     Route: 042
     Dates: start: 20100630, end: 20101117
  4. TAXOL [Suspect]
     Route: 042
     Dates: start: 20090917, end: 20100201
  5. TAXOL [Suspect]
     Route: 042
     Dates: start: 20100630, end: 20100915
  6. AVASTIN [Suspect]
     Dosage: 6 CYCLES OF CHEMOTHERAPY
     Route: 042
     Dates: start: 20100301, end: 20100601

REACTIONS (1)
  - OSTEONECROSIS OF JAW [None]
